FAERS Safety Report 5501835-4 (Version None)
Quarter: 2007Q4

REPORT INFORMATION
  Report Type: 
  Country: None (occurrence: None)
  Receive Date: 20071030
  Receipt Date: 20061113
  Transmission Date: 20080405
  Serious: No
  Sender: FDA-Public Use
  Company Number: A0627273A

PATIENT
  Age: 53 Year
  Sex: Female

DRUGS (8)
  1. SEREVENT [Suspect]
     Indication: ASTHMA
     Dosage: 1PUFF TWICE PER DAY
     Route: 055
     Dates: start: 20061010, end: 20061113
  2. ATROVENT [Concomitant]
  3. ZONEGRAN [Concomitant]
  4. HYDROCHLOROTHIAZIDE [Concomitant]
  5. LISINOPRIL [Concomitant]
  6. POTASSIUM CHLORIDE [Concomitant]
  7. ZANTAC OTC [Concomitant]
  8. ALEVE [Concomitant]

REACTIONS (2)
  - COUGH [None]
  - PHARMACEUTICAL PRODUCT COMPLAINT [None]
